FAERS Safety Report 6929253-2 (Version None)
Quarter: 2010Q3

REPORT INFORMATION
  Report Type: 
  Country: None (occurrence: None)
  Receive Date: 20100812
  Receipt Date: 20100728
  Transmission Date: 20110219
  Serious: Yes (Other)
  Sender: FDA-Public Use
  Company Number: 2010002947

PATIENT
  Age: 80 Year
  Sex: Male

DRUGS (4)
  1. ERLOTINIB HYDROCHLORIDE [Suspect]
     Indication: LUNG NEOPLASM MALIGNANT
     Dosage: (100 MG), ORAL
     Route: 048
     Dates: start: 20100610
  2. INSULIN [Concomitant]
  3. LOSARTAN POTASSIUM [Concomitant]
  4. DIGOXIN [Concomitant]

REACTIONS (2)
  - EMBOLISM ARTERIAL [None]
  - RASH [None]
